FAERS Safety Report 7285643-2 (Version None)
Quarter: 2011Q1

REPORT INFORMATION
  Report Type: 
  Country: None (occurrence: None)
  Receive Date: 20110210
  Receipt Date: 20110209
  Transmission Date: 20110831
  Serious: Yes (Hospitalization)
  Sender: FDA-Public Use
  Company Number: A0905409A

PATIENT
  Age: 31 Year
  Sex: Female

DRUGS (1)
  1. LAMICTAL [Suspect]
     Indication: BIPOLAR DISORDER
     Route: 065
     Dates: start: 20090804, end: 20090801

REACTIONS (7)
  - FATIGUE [None]
  - MALAISE [None]
  - RASH [None]
  - MENINGITIS ASEPTIC [None]
  - ARTHRALGIA [None]
  - DRY EYE [None]
  - PHOTOPHOBIA [None]
